FAERS Safety Report 20089366 (Version 1)
Quarter: 2021Q4

REPORT INFORMATION
  Report Type: Spontaneous
  Country: US (occurrence: US)
  Receive Date: 20211119
  Receipt Date: 20211119
  Transmission Date: 20220303
  Serious: Yes (Hospitalization, Other)
  Sender: FDA-Public Use
  Company Number: US-009507513-2111USA006078

PATIENT
  Age: 63 Year
  Sex: Male

DRUGS (7)
  1. JANUVIA [Suspect]
     Active Substance: SITAGLIPTIN PHOSPHATE
     Indication: Diabetes mellitus
     Dosage: UNK
     Route: 048
  2. CLONIDINE [Suspect]
     Active Substance: CLONIDINE
     Indication: Diabetes mellitus
     Dosage: 0.2 MILLIGRAM
     Route: 048
     Dates: start: 202102
  3. DILTIAZEM [Suspect]
     Active Substance: DILTIAZEM
     Dosage: 180 MILLIGRAM
  4. HYDROCHLOROTHIAZIDE\LOSARTAN [Suspect]
     Active Substance: HYDROCHLOROTHIAZIDE\LOSARTAN
     Dosage: 25 MILLIGRAM
  5. METOPROLOL [Suspect]
     Active Substance: METOPROLOL
     Dosage: UNK UNK, BID
  6. METFORMIN [Concomitant]
     Active Substance: METFORMIN HYDROCHLORIDE
     Dosage: UNK
  7. GLIMEPIRIDE [Concomitant]
     Active Substance: GLIMEPIRIDE
     Dosage: UNK

REACTIONS (2)
  - Road traffic accident [Unknown]
  - Cardiac disorder [Unknown]

NARRATIVE: CASE EVENT DATE: 20211101
